FAERS Safety Report 19355521 (Version 1)
Quarter: 2021Q2

REPORT INFORMATION
  Report Type: Spontaneous
  Country: ES (occurrence: ES)
  Receive Date: 20210602
  Receipt Date: 20210602
  Transmission Date: 20210717
  Serious: Yes (Other)
  Sender: FDA-Public Use
  Company Number: ES-AMGEN-ESPSP2021081971

PATIENT
  Sex: Female
  Weight: 55 kg

DRUGS (2)
  1. ZOLEDRONATE [Concomitant]
     Active Substance: ZOLEDRONIC ACID
     Dosage: 5 MILLIGRAM
     Dates: start: 2021
  2. PROLIA [Suspect]
     Active Substance: DENOSUMAB
     Indication: PRODUCT USED FOR UNKNOWN INDICATION
     Dosage: UNK
     Route: 065

REACTIONS (7)
  - Weight increased [Unknown]
  - Hypophagia [Unknown]
  - Arthralgia [Unknown]
  - Musculoskeletal pain [Unknown]
  - Loss of personal independence in daily activities [Unknown]
  - Myocardial infarction [Unknown]
  - Blood cholesterol increased [Unknown]
